FAERS Safety Report 4809294-1 (Version None)
Quarter: 2005Q4

REPORT INFORMATION
  Report Type: 
  Country: None (occurrence: None)
  Receive Date: 20051021
  Receipt Date: 20051012
  Transmission Date: 20060501
  Serious: Yes (Other)
  Sender: FDA-Public Use
  Company Number: B0395317A

PATIENT
  Age: 62 Year
  Sex: Male

DRUGS (7)
  1. LITHIUM CARBONATE [Suspect]
  2. ANTIHYPERTENSIVE [Concomitant]
  3. DIURETIC [Concomitant]
  4. ACE INHIBITOR [Concomitant]
  5. NSAID [Concomitant]
  6. ASPIRIN [Concomitant]
  7. SULFONYLUREA AGENT [Concomitant]

REACTIONS (12)
  - AGITATION [None]
  - ANTIPSYCHOTIC DRUG LEVEL ABOVE THERAPEUTIC [None]
  - CARDIAC OPERATION [None]
  - DELIRIUM [None]
  - DEPRESSED LEVEL OF CONSCIOUSNESS [None]
  - DISORIENTATION [None]
  - DYSARTHRIA [None]
  - HYPOGLYCAEMIA [None]
  - HYPOTENSION [None]
  - IRRITABILITY [None]
  - SOMNOLENCE [None]
  - THERAPEUTIC AGENT TOXICITY [None]
